FAERS Safety Report 10755338 (Version 4)
Quarter: 2015Q1

REPORT INFORMATION
  Report Type: Spontaneous
  Country: PE (occurrence: PE)
  Receive Date: 20150202
  Receipt Date: 20150218
  Transmission Date: 20150721
  Serious: Yes (Other)
  Sender: FDA-Public Use
  Company Number: PE-PFIZER INC-2015041449

PATIENT
  Age: 81 Year
  Sex: Female

DRUGS (1)
  1. LYRICA [Suspect]
     Active Substance: PREGABALIN
     Indication: SCIATICA
     Dosage: UNK

REACTIONS (5)
  - Pain [Unknown]
  - Abasia [Not Recovered/Not Resolved]
  - Contusion [Recovering/Resolving]
  - Hip fracture [Recovering/Resolving]
  - Fall [Recovering/Resolving]
